FAERS Safety Report 10147046 (Version 1)
Quarter: 2014Q2

REPORT INFORMATION
  Report Type: Spontaneous
  Country: US (occurrence: US)
  Receive Date: 20140501
  Receipt Date: 20140501
  Transmission Date: 20141212
  Serious: No
  Sender: FDA-Public Use
  Company Number: US-PFIZER INC-2014119656

PATIENT
  Age: 58 Year
  Sex: Male
  Weight: 78.01 kg

DRUGS (1)
  1. NEURONTIN [Suspect]
     Indication: BURNING SENSATION
     Dosage: UNK
     Route: 048
     Dates: start: 2004

REACTIONS (2)
  - Peripheral coldness [Unknown]
  - Drug ineffective [Unknown]
